FAERS Safety Report 7710481-3 (Version None)
Quarter: 2011Q3

REPORT INFORMATION
  Report Type: 
  Country: None (occurrence: None)
  Receive Date: 20110825
  Receipt Date: 20110815
  Transmission Date: 20111222
  Serious: No
  Sender: FDA-Public Use
  Company Number: US-B.I. PHARMACEUTICALS,INC./RIDGEFIELD-2011-BP-19968BP

PATIENT
  Sex: Male

DRUGS (5)
  1. MEDICATION NOT FURTHER SPECIFIED [Suspect]
     Indication: BLOOD CHOLESTEROL
  2. ATENOLOL [Suspect]
     Indication: HYPERTENSION
  3. FLOMAX [Suspect]
  4. PLAVIX [Suspect]
     Indication: STENT PLACEMENT
     Route: 048
     Dates: start: 20090101
  5. ATENOLOL [Suspect]
     Indication: CARDIAC DISORDER

REACTIONS (1)
  - ABDOMINAL DISCOMFORT [None]
